FAERS Safety Report 5323654-4 (Version None)
Quarter: 2007Q2

REPORT INFORMATION
  Report Type: 
  Country: None (occurrence: None)
  Receive Date: 20070510
  Receipt Date: 20070510
  Transmission Date: 20071010
  Serious: Yes (Life-Threatening, Hospitalization, Other)
  Sender: FDA-Public Use
  Company Number: None

PATIENT
  Sex: Female
  Weight: 65.7716 kg

DRUGS (1)
  1. BONIVA [Suspect]
     Indication: OSTEOPOROSIS PROPHYLAXIS
     Dosage: 1-PILL
     Dates: start: 20070402

REACTIONS (6)
  - ANOREXIA [None]
  - ARTHRALGIA [None]
  - BEDRIDDEN [None]
  - BLOOD PRESSURE DECREASED [None]
  - CHILLS [None]
  - PAIN [None]
